FAERS Safety Report 15536602 (Version 2)
Quarter: 2018Q4

REPORT INFORMATION
  Report Type: Report from Study
  Country: EG (occurrence: EG)
  Receive Date: 20181022
  Receipt Date: 20181101
  Transmission Date: 20190205
  Serious: Yes (Death, Other)
  Sender: FDA-Public Use
  Company Number: PHHY2018EG123123

PATIENT
  Age: 52 Year
  Sex: Female

DRUGS (3)
  1. KISQALI [Suspect]
     Active Substance: RIBOCICLIB
     Indication: LUNG NEOPLASM MALIGNANT
     Dosage: 400 MG, QD
     Route: 048
  2. KISQALI [Suspect]
     Active Substance: RIBOCICLIB
     Indication: BREAST CANCER
     Dosage: 600 MG, QD
     Route: 048
     Dates: start: 20180711
  3. KISQALI [Suspect]
     Active Substance: RIBOCICLIB
     Dosage: UNK
     Route: 048
     Dates: start: 20180726, end: 20180918

REACTIONS (8)
  - Diabetic coma [Unknown]
  - Metastases to lung [Fatal]
  - Metastases to central nervous system [Fatal]
  - Metastases to liver [Fatal]
  - Abdominal pain [Unknown]
  - Ascites [Unknown]
  - Pneumonitis [Unknown]
  - Metastases to bone [Fatal]

NARRATIVE: CASE EVENT DATE: 201807
